FAERS Safety Report 8147623-4 (Version None)
Quarter: 2012Q1

REPORT INFORMATION
  Report Type: 
  Country: None (occurrence: None)
  Receive Date: 20120218
  Receipt Date: 20110414
  Transmission Date: 20120608
  Serious: No
  Sender: FDA-Public Use
  Company Number: US-ALLERGAN-1102613US

PATIENT
  Age: 49 Year
  Sex: Female

DRUGS (5)
  1. YAZ [Concomitant]
     Indication: CONTRACEPTION
     Route: 048
  2. BOTOX COSMETIC [Suspect]
     Dosage: UNK UNITS
     Dates: start: 20100601, end: 20100601
  3. BOTOX COSMETIC [Suspect]
     Dosage: UNK UNITS
     Dates: start: 20090731, end: 20090731
  4. BOTOX COSMETIC [Suspect]
     Dosage: UNK UNITS
     Dates: start: 20091214, end: 20091214
  5. BOTOX COSMETIC [Suspect]
     Indication: SKIN WRINKLING
     Dosage: 35 UNITS, SINGLE
     Route: 030
     Dates: start: 20110217, end: 20110217

REACTIONS (3)
  - HYPOAESTHESIA ORAL [None]
  - TONGUE PARALYSIS [None]
  - WRONG TECHNIQUE IN DRUG USAGE PROCESS [None]
